FAERS Safety Report 20670798 (Version 1)
Quarter: 2022Q2

REPORT INFORMATION
  Report Type: Spontaneous
  Country: US (occurrence: None)
  Receive Date: 20220401
  Receipt Date: 20220401
  Transmission Date: 20220721
  Serious: Yes (Other)
  Sender: FDA-Public Use
  Company Number: None

PATIENT
  Sex: Female

DRUGS (2)
  1. BOTOX [Suspect]
     Active Substance: ONABOTULINUMTOXINA
     Indication: Migraine with aura
     Dosage: OTHER QUANTITY : 200 UNIT;?OTHER FREQUENCY : EVERY 12 WEEKS ;?
     Route: 030
     Dates: start: 20191119
  2. MULTIVITAMIN TAB [Concomitant]

REACTIONS (1)
  - Endocrine ophthalmopathy [None]
